FAERS Safety Report 5067869-1 (Version None)
Quarter: 2006Q3

REPORT INFORMATION
  Report Type: 
  Country: None (occurrence: None)
  Receive Date: 20060717
  Receipt Date: 20060508
  Transmission Date: 20061208
  Serious: Yes (Hospitalization)
  Sender: FDA-Public Use
  Company Number: 2006000998

PATIENT
  Age: 62 Year
  Sex: Male

DRUGS (2)
  1. TARCEVA [Suspect]
     Indication: PANCREATIC CARCINOMA
     Dosage: 75 MG (QD), ORAL
     Route: 048
     Dates: start: 20051201, end: 20060228
  2. GEMCITABINE [Concomitant]

REACTIONS (1)
  - PNEUMONITIS [None]
